FAERS Safety Report 6520535-5 (Version None)
Quarter: 2009Q4

REPORT INFORMATION
  Report Type: 
  Country: None (occurrence: None)
  Receive Date: 20091229
  Receipt Date: 20091216
  Transmission Date: 20100525
  Serious: Yes (Disabling)
  Sender: FDA-Public Use
  Company Number: B0621337A

PATIENT
  Sex: Female
  Weight: 60.5 kg

DRUGS (2)
  1. PAZOPANIB [Suspect]
     Indication: SARCOMA
     Dosage: 800MG PER DAY
     Route: 048
     Dates: start: 20090723
  2. PANDEMRIX [Concomitant]
     Indication: INFLUENZA IMMUNISATION
     Dosage: 3.75MG SINGLE DOSE
     Route: 030
     Dates: start: 20091103, end: 20091103

REACTIONS (3)
  - COUGH [None]
  - PNEUMONIA [None]
  - PYREXIA [None]
